FAERS Safety Report 4301820-4 (Version None)
Quarter: 2004Q1

REPORT INFORMATION
  Report Type: 
  Country: None (occurrence: None)
  Receive Date: 20040218
  Receipt Date: 20031021
  Transmission Date: 20041129
  Serious: Yes (Hospitalization)
  Sender: FDA-Public Use
  Company Number: 2003178316US

PATIENT
  Age: 72 Year
  Sex: Male

DRUGS (2)
  1. DELTASONE [Suspect]
     Indication: RASH
     Dosage: UNK, SINGLE, UNK
  2. VALDECOXIB [Concomitant]

REACTIONS (1)
  - MENTAL STATUS CHANGES [None]
